FAERS Safety Report 11647838 (Version 2)
Quarter: 2017Q1

REPORT INFORMATION
  Report Type: Spontaneous
  Country: TW (occurrence: TW)
  Receive Date: 20151021
  Receipt Date: 20170131
  Transmission Date: 20170428
  Serious: Yes (Other)
  Sender: FDA-Public Use
  Company Number: TW-SUN PHARMACEUTICAL INDUSTRIES LTD-2015R1-104443

PATIENT
  Age: 71 Year
  Sex: Male

DRUGS (2)
  1. VITAMIN K [Suspect]
     Active Substance: PHYTONADIONE
     Indication: HAEMATURIA
     Dosage: UNK
     Route: 065
  2. DESMOPRESSIN [Suspect]
     Active Substance: DESMOPRESSIN
     Indication: HAEMATURIA
     Dosage: UNK
     Route: 065

REACTIONS (1)
  - Drug ineffective [Unknown]
